FAERS Safety Report 5216552-8 (Version None)
Quarter: 2007Q1

REPORT INFORMATION
  Report Type: 
  Country: None (occurrence: None)
  Receive Date: 20061130
  Receipt Date: 20060814
  Transmission Date: 20070707
  Serious: Yes (Hospitalization)
  Sender: FDA-Public Use
  Company Number: US200608003330

PATIENT
  Age: 38 Year
  Sex: Female
  Weight: 151.9 kg

DRUGS (10)
  1. ZYPREXA [Suspect]
  2. GEODON [Concomitant]
  3. RISPERDAL /SWE/ (RISPERIDONE) [Concomitant]
  4. ABILIFY [Concomitant]
  5. SEROQUEL [Concomitant]
  6. HALDOL SOLUTAB [Concomitant]
  7. DEPAKOTE [Concomitant]
  8. PROZAC [Concomitant]
  9. PAXIL [Concomitant]
  10. ZOLOFT [Concomitant]

REACTIONS (3)
  - DIABETES MELLITUS [None]
  - HYPERGLYCAEMIA [None]
  - VISION BLURRED [None]
